FAERS Safety Report 14448131 (Version 3)
Quarter: 2020Q2

REPORT INFORMATION
  Report Type: Spontaneous
  Country: US (occurrence: US)
  Receive Date: 20180126
  Receipt Date: 20200604
  Transmission Date: 20200713
  Serious: Yes (Hospitalization, Other)
  Sender: FDA-Public Use
  Company Number: PHEH2018US002794

PATIENT
  Age: 57 Year
  Sex: Female
  Weight: 89.8 kg

DRUGS (11)
  1. HUMIRA [Suspect]
     Active Substance: ADALIMUMAB
     Dosage: 40 MG, Q2W
     Route: 058
     Dates: start: 201709, end: 201712
  2. ZANTAC [Concomitant]
     Active Substance: RANITIDINE HYDROCHLORIDE
     Indication: HYPERCHLORHYDRIA
     Dosage: 300 MG, QD
     Route: 048
  3. HUMIRA [Suspect]
     Active Substance: ADALIMUMAB
     Dosage: 40 MG, Q2W
     Route: 058
     Dates: end: 2019
  4. CATAFLAM [Suspect]
     Active Substance: DICLOFENAC POTASSIUM
     Indication: PRODUCT USED FOR UNKNOWN INDICATION
     Route: 065
  5. VALIUM [Concomitant]
     Active Substance: DIAZEPAM
     Indication: DYSKINESIA
     Dosage: 10 MG
     Route: 054
     Dates: start: 2018
  6. VITAMIN D [Concomitant]
     Active Substance: VITAMIN D NOS
     Indication: RHEUMATOID ARTHRITIS
     Dosage: 1000 U, QD
     Route: 048
  7. HUMIRA [Suspect]
     Active Substance: ADALIMUMAB
     Dosage: 40 MG, Q2W
     Route: 058
     Dates: start: 2009, end: 2019
  8. HYZAAR [Concomitant]
     Active Substance: HYDROCHLOROTHIAZIDE\LOSARTAN POTASSIUM
     Indication: HYPERTENSION
     Dosage: UNK
     Route: 048
  9. FOSAMAX [Concomitant]
     Active Substance: ALENDRONATE SODIUM
     Indication: OSTEOPOROSIS
     Dosage: 70 MG, QD
     Route: 048
  10. HUMIRA [Suspect]
     Active Substance: ADALIMUMAB
     Indication: RHEUMATOID ARTHRITIS
     Dosage: 40 MG, Q2W
     Route: 058
     Dates: start: 2009, end: 20170819
  11. HUMIRA [Suspect]
     Active Substance: ADALIMUMAB
     Dosage: 40 MG, Q2W
     Route: 065

REACTIONS (28)
  - Osteoporosis [Recovering/Resolving]
  - Concomitant disease aggravated [Not Recovered/Not Resolved]
  - Pruritus [Recovered/Resolved]
  - Mobility decreased [Unknown]
  - Fall [Unknown]
  - Tracheal oedema [Recovered/Resolved]
  - Fall [Recovered/Resolved]
  - Inflammation [Unknown]
  - Rheumatoid arthritis [Unknown]
  - Gait disturbance [Not Recovered/Not Resolved]
  - Feeling hot [Recovered/Resolved]
  - Pain [Not Recovered/Not Resolved]
  - Hypertension [Unknown]
  - Osteoarthritis [Recovering/Resolving]
  - Arthritis [Not Recovered/Not Resolved]
  - Arthralgia [Not Recovered/Not Resolved]
  - Oedema peripheral [Recovered/Resolved]
  - Injury [Unknown]
  - Hypersensitivity [Recovered/Resolved]
  - Limb injury [Recovering/Resolving]
  - Osteopenia [Not Recovered/Not Resolved]
  - Burning sensation [Recovered/Resolved]
  - Fungal infection [Not Recovered/Not Resolved]
  - Pain in extremity [Unknown]
  - Fall [Recovered/Resolved]
  - Face oedema [Recovered/Resolved]
  - Tendon rupture [Not Recovered/Not Resolved]
  - Sciatica [Unknown]

NARRATIVE: CASE EVENT DATE: 201706
